FAERS Safety Report 19093650 (Version 3)
Quarter: 2022Q1

REPORT INFORMATION
  Report Type: Report from Study
  Country: US (occurrence: US)
  Receive Date: 20210405
  Receipt Date: 20220301
  Transmission Date: 20220423
  Serious: Yes (Other)
  Sender: FDA-Public Use
  Company Number: US-TAKEDA-2021TUS021807

PATIENT
  Age: 75 Year
  Sex: Female
  Weight: 135 kg

DRUGS (16)
  1. .ALPHA.1-PROTEINASE INHIBITOR HUMAN [Suspect]
     Active Substance: .ALPHA.1-PROTEINASE INHIBITOR HUMAN
     Indication: Alpha-1 antitrypsin deficiency
     Dosage: 60 MILLIGRAM/KILOGRAM, 1/WEEK
     Route: 042
     Dates: start: 20090327
  2. .ALPHA.1-PROTEINASE INHIBITOR HUMAN [Suspect]
     Active Substance: .ALPHA.1-PROTEINASE INHIBITOR HUMAN
     Indication: Alpha-1 antitrypsin deficiency
     Dosage: 60 MILLIGRAM/KILOGRAM, 1/WEEK
     Route: 042
     Dates: start: 20090327
  3. .ALPHA.1-PROTEINASE INHIBITOR HUMAN [Suspect]
     Active Substance: .ALPHA.1-PROTEINASE INHIBITOR HUMAN
     Dosage: 3715 MILLIGRAM/KILOGRAM, 1/WEEK
     Route: 042
     Dates: start: 20090327
  4. .ALPHA.1-PROTEINASE INHIBITOR HUMAN [Suspect]
     Active Substance: .ALPHA.1-PROTEINASE INHIBITOR HUMAN
     Dosage: 3715 MILLIGRAM/KILOGRAM, 1/WEEK
     Route: 042
     Dates: start: 20090327
  5. DIPHENHYDRAMINE [Concomitant]
     Active Substance: DIPHENHYDRAMINE
  6. SODIUM CHLORIDE [Concomitant]
     Active Substance: SODIUM CHLORIDE
     Dosage: UNK
     Route: 065
  7. EPINEPHRINE [Concomitant]
     Active Substance: EPINEPHRINE
  8. DALIRESP [Concomitant]
     Active Substance: ROFLUMILAST
  9. YUPELRI [Concomitant]
     Active Substance: REVEFENACIN
  10. OXYGEN [Concomitant]
     Active Substance: OXYGEN
  11. ATORVASTATIN [Concomitant]
     Active Substance: ATORVASTATIN
  12. QUINAPRIL [Concomitant]
     Active Substance: QUINAPRIL
  13. METOPROLOL [Concomitant]
     Active Substance: METOPROLOL
  14. PLAVIX [Concomitant]
     Active Substance: CLOPIDOGREL BISULFATE
  15. BREO ELLIPTA [Concomitant]
     Active Substance: FLUTICASONE FUROATE\VILANTEROL TRIFENATATE
  16. MUCINEX [Concomitant]
     Active Substance: GUAIFENESIN

REACTIONS (6)
  - Basal cell carcinoma [Unknown]
  - Fall [Unknown]
  - Pain in extremity [Unknown]
  - Micrographic skin surgery [Unknown]
  - Cough [Unknown]
  - Product dose omission issue [Unknown]

NARRATIVE: CASE EVENT DATE: 20220117
